FAERS Safety Report 8100986-8 (Version None)
Quarter: 2012Q1

REPORT INFORMATION
  Report Type: 
  Country: None (occurrence: None)
  Receive Date: 20120129
  Receipt Date: 20111121
  Transmission Date: 20120608
  Serious: Yes (Other)
  Sender: FDA-Public Use
  Company Number: US-ABBOTT-11P-163-0877135-00

PATIENT
  Age: 42 Year
  Sex: Female

DRUGS (6)
  1. BENTYL [Concomitant]
     Indication: IRRITABLE BOWEL SYNDROME
  2. DICLOFENAC [Concomitant]
     Indication: RHEUMATOID ARTHRITIS
     Route: 048
  3. METHOTREXATE [Concomitant]
     Indication: RHEUMATOID ARTHRITIS
     Dosage: PER WEEK
  4. DEXILANT [Concomitant]
     Indication: GASTRIC DISORDER
  5. HUMIRA [Suspect]
     Indication: RHEUMATOID ARTHRITIS
     Route: 058
  6. LEVBID [Concomitant]
     Indication: IRRITABLE BOWEL SYNDROME

REACTIONS (5)
  - CHOLECYSTECTOMY [None]
  - HYSTERECTOMY [None]
  - PAIN [None]
  - COELIAC DISEASE [None]
  - OOPHORECTOMY [None]
